FAERS Safety Report 8559449 (Version 4)
Quarter: 2012Q4

REPORT INFORMATION
  Report Type: 
  Country: US (occurrence: US)
  Receive Date: 20120513
  Receipt Date: 20121015
  Transmission Date: 20130627
  Serious: Yes (Hospitalization)
  Sender: FDA-Public Use
  Company Number: US-ELI_LILLY_AND_COMPANY-US201205001547

PATIENT
  Age: 61 Year
  Sex: Female

DRUGS (17)
  1. FORTEO [Suspect]
     Indication: OSTEOPOROSIS
     Dosage: 20 ug, qd
  2. FORTEO [Suspect]
     Dosage: 20 ug, qd
     Dates: end: 20120409
  3. FORTEO [Suspect]
     Dosage: 20 ug, qd
  4. IBUPROFEN [Concomitant]
     Dosage: 600 mg, prn
  5. LORTAB                             /00607101/ [Concomitant]
     Dosage: 10 mg, prn
  6. SERTRALINE [Concomitant]
     Dosage: 100 mg, qd
  7. ASPIRIN [Concomitant]
     Dosage: UNK UNK, qd
  8. LOSARTAN [Concomitant]
     Dosage: 50 mg, qd
  9. AMLODIPINE [Concomitant]
     Dosage: 5 mg, qd
  10. MUSCLE RELAXANTS [Concomitant]
  11. OMEPRAZOLE [Concomitant]
     Dosage: 20 mg, bid
  12. ELAVIL [Concomitant]
     Dosage: UNK UNK, prn
  13. LEVOTHYROXINE [Concomitant]
     Dosage: 0.25 mg, qd
  14. VITAMIN D3 [Concomitant]
     Dosage: 5000 u, qd
  15. ROSUVASTATIN [Concomitant]
     Indication: BLOOD CHOLESTEROL
     Dosage: 10 mg, each evening
  16. CALCIUM [Concomitant]
     Dosage: 600 mg, bid
  17. MULTIVITAMIN [Concomitant]
     Dosage: UNK, qd

REACTIONS (3)
  - Medical device implantation [Recovering/Resolving]
  - Irritability [Recovered/Resolved]
  - Pain [Recovered/Resolved]
